FAERS Safety Report 9238856 (Version 1)
Quarter: 2013Q2

REPORT INFORMATION
  Report Type: Report from Study
  Country: US (occurrence: US)
  Receive Date: 20130418
  Receipt Date: 20130418
  Transmission Date: 20140414
  Serious: Yes (Other)
  Sender: FDA-Public Use
  Company Number: PHEH2013US008669

PATIENT
  Sex: Female

DRUGS (2)
  1. GILENYA [Suspect]
     Indication: MULTIPLE SCLEROSIS
     Dosage: 0.5 MG, QD
     Route: 048
     Dates: start: 20110119
  2. ADDERALL [Concomitant]
     Indication: FATIGUE

REACTIONS (1)
  - Central nervous system lesion [Not Recovered/Not Resolved]
